FAERS Safety Report 10301624 (Version 1)
Quarter: 2014Q3

REPORT INFORMATION
  Report Type: Spontaneous
  Country: US (occurrence: US)
  Receive Date: 20140714
  Receipt Date: 20140714
  Transmission Date: 20150326
  Serious: Yes (Other)
  Sender: FDA-Public Use
  Company Number: US-BAYER-2014-101381

PATIENT

DRUGS (1)
  1. AVELOX [Suspect]
     Active Substance: MOXIFLOXACIN HYDROCHLORIDE
     Dosage: 400 MG, UNK

REACTIONS (3)
  - Blood pressure immeasurable [None]
  - Loss of consciousness [Recovering/Resolving]
  - Pulse absent [Recovering/Resolving]
